FAERS Safety Report 11147469 (Version 1)
Quarter: 2015Q2

REPORT INFORMATION
  Report Type: Spontaneous
  Country: US (occurrence: US)
  Receive Date: 20150529
  Receipt Date: 20150529
  Transmission Date: 20150821
  Serious: No
  Sender: FDA-Public Use
  Company Number: US-009507513-1505USA012649

PATIENT
  Age: 77 Year
  Sex: Male

DRUGS (1)
  1. FUROSEMIDE. [Suspect]
     Active Substance: FUROSEMIDE
     Indication: OEDEMA PERIPHERAL
     Route: 048

REACTIONS (1)
  - Drug ineffective [Unknown]
